FAERS Safety Report 9696013 (Version 2)
Quarter: 2013Q4

REPORT INFORMATION
  Report Type: Report from Study
  Country: US (occurrence: US)
  Receive Date: 20131119
  Receipt Date: 20131119
  Transmission Date: 20140711
  Serious: Yes (Hospitalization, Disabling)
  Sender: FDA-Public Use
  Company Number: US-US-EMD SERONO, INC.-7244485

PATIENT
  Sex: Female

DRUGS (2)
  1. REBIF [Suspect]
     Indication: MULTIPLE SCLEROSIS
     Route: 058
     Dates: start: 20041003
  2. REBIF [Suspect]
     Route: 058
     Dates: start: 201208

REACTIONS (3)
  - Burn infection [Unknown]
  - Burns third degree [Recovering/Resolving]
  - Gait disturbance [Not Recovered/Not Resolved]
